FAERS Safety Report 19221057 (Version 2)
Quarter: 2021Q2

REPORT INFORMATION
  Report Type: Spontaneous
  Country: FR (occurrence: FR)
  Receive Date: 20210506
  Receipt Date: 20210512
  Transmission Date: 20210717
  Serious: Yes (Other)
  Sender: FDA-Public Use
  Company Number: FR-ROCHE-2825028

PATIENT
  Age: 27 Year
  Sex: Female
  Weight: 62.5 kg

DRUGS (5)
  1. LANSOPRAZOLE. [Suspect]
     Active Substance: LANSOPRAZOLE
     Indication: PROPHYLAXIS
     Route: 048
     Dates: end: 20210419
  2. CORTANCYL [Concomitant]
     Active Substance: PREDNISONE
     Indication: IMMUNE THROMBOCYTOPENIA
     Route: 048
     Dates: start: 202102
  3. BACTRIM [Suspect]
     Active Substance: SULFAMETHOXAZOLE\TRIMETHOPRIM
     Indication: ANTIFUNGAL PROPHYLAXIS
     Dosage: MONDAY WEDNESDAY FRIDAY?LAST DOSE RECEIVED PRIOR TO THE EVENT ONSET ON 19/MAR/2021
     Route: 048
     Dates: start: 202102
  4. RITUXIMAB. [Suspect]
     Active Substance: RITUXIMAB
     Indication: IMMUNE THROMBOCYTOPENIA
     Dosage: 600MG 12/02, 16/02, 19/02 AND 03/03?LAST DOSE PRIOR TO EVENT ONSET RECEIVED ON 03/MAR/2021
     Route: 041
     Dates: start: 20210212
  5. CABLIVI [Suspect]
     Active Substance: CAPLACIZUMAB-YHDP
     Indication: IMMUNE THROMBOCYTOPENIA
     Dosage: LAST DOSE RECEIVED PRIOR TO THE EVENT ONSET ON 16/MAR/2021
     Route: 041
     Dates: start: 20210211

REACTIONS (1)
  - Neutropenia [Recovered/Resolved]

NARRATIVE: CASE EVENT DATE: 20210419
